FAERS Safety Report 5692597-9 (Version None)
Quarter: 2008Q2

REPORT INFORMATION
  Report Type: 
  Country: None (occurrence: None)
  Receive Date: 20080402
  Receipt Date: 20080306
  Transmission Date: 20081010
  Serious: No
  Sender: FDA-Public Use
  Company Number: US-BOEHRINGER INGELHEIM GMBH, GERMANY-2008-BP-02161BP

PATIENT
  Sex: Male

DRUGS (10)
  1. SPIRIVA [Suspect]
     Indication: CHRONIC OBSTRUCTIVE PULMONARY DISEASE
     Route: 055
     Dates: start: 20060101
  2. LOVASTATIN [Concomitant]
  3. WELCHOL [Concomitant]
  4. BP MEDS [Concomitant]
  5. GLYBURIDE [Concomitant]
  6. ADVAIR HFA [Concomitant]
  7. LISINOPRIL [Concomitant]
  8. FINASTERIDE [Concomitant]
  9. HYDREX [Concomitant]
  10. FLOMAX [Concomitant]

REACTIONS (1)
  - PROSTATIC SPECIFIC ANTIGEN INCREASED [None]
